FAERS Safety Report 12699739 (Version 1)
Quarter: 2016Q3

REPORT INFORMATION
  Report Type: Spontaneous
  Country: IT (occurrence: IT)
  Receive Date: 20160830
  Receipt Date: 20160830
  Transmission Date: 20161109
  Serious: Yes (Other)
  Sender: FDA-Public Use
  Company Number: PHHY2016IT117705

PATIENT
  Age: 77 Year
  Sex: Female
  Weight: 57 kg

DRUGS (2)
  1. COMBISARTAN [Suspect]
     Active Substance: HYDROCHLOROTHIAZIDE\VALSARTAN
     Indication: ESSENTIAL HYPERTENSION
     Dosage: 1 DF, QD (HCT 12.5 MG, VALSARTAN 160 MG))
     Route: 048
     Dates: start: 20160518, end: 20160805
  2. FLUSPIRAL [Interacting]
     Active Substance: FLUTICASONE PROPIONATE
     Indication: CHRONIC OBSTRUCTIVE PULMONARY DISEASE
     Dosage: 2 DF, QD
     Route: 048
     Dates: start: 20160410

REACTIONS (2)
  - Drug interaction [Recovered/Resolved]
  - Vasculitis [Recovered/Resolved]

NARRATIVE: CASE EVENT DATE: 20160518
